FAERS Safety Report 7289982-0 (Version None)
Quarter: 2011Q1

REPORT INFORMATION
  Report Type: 
  Country: None (occurrence: None)
  Receive Date: 20110210
  Receipt Date: 20110210
  Transmission Date: 20110831
  Serious: No
  Sender: FDA-Public Use
  Company Number: None

PATIENT
  Age: 4 Year
  Sex: Male
  Weight: 18.1439 kg

DRUGS (2)
  1. METHOTREXATE [Suspect]
     Indication: LEUKAEMIA
     Dosage: 7 TABS FOR 4 DOSES EVERY 6 HRS PO
     Route: 048
     Dates: start: 20110209, end: 20110210
  2. CLORPRES [Suspect]
     Indication: LEUKAEMIA
     Dosage: 4 DOSES
     Dates: start: 20110209, end: 20110210

REACTIONS (2)
  - MEDICATION ERROR [None]
  - INTERCEPTED DRUG DISPENSING ERROR [None]
